FAERS Safety Report 12394469 (Version 1)
Quarter: 2016Q2

REPORT INFORMATION
  Report Type: Spontaneous
  Country: US (occurrence: US)
  Receive Date: 20160523
  Receipt Date: 20160523
  Transmission Date: 20160815
  Serious: No
  Sender: FDA-Public Use
  Company Number: US-BAYER-2016-094858

PATIENT
  Age: 81 Year
  Sex: Female
  Weight: 72.56 kg

DRUGS (2)
  1. MIRALAX [Suspect]
     Active Substance: POLYETHYLENE GLYCOL 3350
     Indication: COLONOSCOPY
     Dosage: UNK
     Route: 048
     Dates: start: 20160516
  2. ARIMIDEX [Concomitant]
     Active Substance: ANASTROZOLE

REACTIONS (3)
  - Product use issue [None]
  - Off label use [None]
  - Product use issue [None]

NARRATIVE: CASE EVENT DATE: 20160516
